FAERS Safety Report 4418048-X (Version None)
Quarter: 2004Q3

REPORT INFORMATION
  Report Type: 
  Country: None (occurrence: None)
  Receive Date: 20040803
  Receipt Date: 20040719
  Transmission Date: 20050211
  Serious: Yes (Other)
  Sender: FDA-Public Use
  Company Number: 200412617BCC

PATIENT
  Age: 64 Year
  Sex: Female
  Weight: 89.8122 kg

DRUGS (11)
  1. ASPIRIN EXTRA STRENGTH BAYER PLUS CAPLETS (ACETYLSALICYLIC ACID) [Suspect]
     Indication: BACK PAIN
     Dosage: 500 MG, QD, ORAL
     Route: 048
     Dates: end: 20020101
  2. ASPIRIN EXTRA STRENGTH BAYER PLUS CAPLETS (ACETYLSALICYLIC ACID) [Suspect]
     Indication: BACK PAIN
     Dosage: 500 MG, QD, ORAL
     Route: 048
     Dates: start: 20020101
  3. PROZAC [Concomitant]
  4. KLONOPIN [Concomitant]
  5. PRINIVIL [Concomitant]
  6. NADOLOL [Concomitant]
  7. ISOSORBIDE [Concomitant]
  8. CLARINEX/ USA/ [Concomitant]
  9. PREVACID [Interacting]
  10. IRON SUPPLEMENT (NOS) [Concomitant]
  11. HYDRODIURIL [Concomitant]

REACTIONS (13)
  - AMNESIA [None]
  - ASTHENIA [None]
  - BLOOD TEST ABNORMAL [None]
  - BRONCHITIS [None]
  - COLONIC POLYP [None]
  - GASTRIC ANTRAL VASCULAR ECTASIA [None]
  - GASTRIC HAEMORRHAGE [None]
  - HEPATIC CIRRHOSIS [None]
  - PAIN [None]
  - PLATELET COUNT DECREASED [None]
  - PORTAL HYPERTENSIVE GASTROPATHY [None]
  - SPLENOMEGALY [None]
  - THROMBOCYTOPENIA [None]
